FAERS Safety Report 7977072 (Version 2)
Quarter: 2024Q3

REPORT INFORMATION
  Report Type: Report from Study
  Country: US (occurrence: US)
  Receive Date: 20110607
  Receipt Date: 20240907
  Transmission Date: 20241016
  Serious: Yes (Death, Hospitalization)
  Sender: ASTELLAS
  Company Number: US-ASTELLAS-2011US002689

PATIENT
  Age: 56 Year
  Sex: Female
  Weight: 53 kg

DRUGS (4)
  1. TARCEVA [Suspect]
     Active Substance: ERLOTINIB HYDROCHLORIDE
     Indication: Bile duct cancer
     Dosage: 100 MG, ONCE DAILY
     Route: 048
     Dates: start: 20110215, end: 20110418
  2. TARCEVA [Suspect]
     Active Substance: ERLOTINIB HYDROCHLORIDE
     Indication: Cholangiocarcinoma
  3. SORAFENIB [Suspect]
     Active Substance: SORAFENIB
     Indication: Cholangiocarcinoma
     Dosage: 400 MG, TWICE DAILY
     Route: 048
     Dates: start: 20110215, end: 20110418
  4. SORAFENIB [Suspect]
     Active Substance: SORAFENIB
     Indication: Bile duct cancer

REACTIONS (3)
  - Hypertension [Fatal]
  - Sepsis [Fatal]
  - Ascites [Fatal]

NARRATIVE: CASE EVENT DATE: 20110418
